FAERS Safety Report 20821442 (Version 1)
Quarter: 2022Q2

REPORT INFORMATION
  Report Type: Spontaneous
  Country: JP (occurrence: JP)
  Receive Date: 20220512
  Receipt Date: 20220512
  Transmission Date: 20220721
  Serious: Yes (Death, Other)
  Sender: FDA-Public Use
  Company Number: JP-TAKEDA-2022TJP046523

PATIENT
  Age: 9 Decade
  Sex: Female

DRUGS (1)
  1. ROZEREM [Suspect]
     Active Substance: RAMELTEON
     Indication: Product used for unknown indication
     Dosage: UNK UNK, QD
     Route: 048
     Dates: end: 20211201

REACTIONS (2)
  - Death [Fatal]
  - Inappropriate schedule of product administration [Unknown]

NARRATIVE: CASE EVENT DATE: 20220113
